FAERS Safety Report 18931486 (Version 3)
Quarter: 2021Q2

REPORT INFORMATION
  Report Type: Spontaneous
  Country: US (occurrence: US)
  Receive Date: 20210223
  Receipt Date: 20210512
  Transmission Date: 20210717
  Serious: Yes (Hospitalization)
  Sender: FDA-Public Use
  Company Number: US-VIFOR (INTERNATIONAL) INC.-VIT-2021-01754

PATIENT
  Age: 62 Year
  Sex: Male
  Weight: 127 kg

DRUGS (13)
  1. PERICOLACE [Concomitant]
     Dosage: 8.6?50 MG
     Route: 048
  2. SENNOKAT SAS [Concomitant]
     Dosage: 8.6?50 MG
     Route: 048
  3. VITAMIN D [Concomitant]
     Active Substance: VITAMIN D NOS
     Route: 048
  4. VELPHORO [Suspect]
     Active Substance: SUCROFERRIC OXYHYDROXIDE
     Indication: PRODUCT USED FOR UNKNOWN INDICATION
     Route: 048
  5. SENSIPAR [Concomitant]
     Active Substance: CINACALCET HYDROCHLORIDE
     Route: 048
  6. NOVOLIN NOS [Concomitant]
     Active Substance: INSULIN HUMAN
  7. TYLENOL [Concomitant]
     Active Substance: ACETAMINOPHEN
     Route: 048
  8. VELTASSA [Suspect]
     Active Substance: PATIROMER
     Indication: HYPERKALAEMIA
     Route: 048
     Dates: start: 20210126
  9. PHOSLO [Concomitant]
     Active Substance: CALCIUM ACETATE
     Route: 048
     Dates: start: 20201123
  10. LANTUS [Concomitant]
     Active Substance: INSULIN GLARGINE
  11. LIPITOR [Concomitant]
     Active Substance: ATORVASTATIN CALCIUM
     Route: 048
     Dates: start: 20201123
  12. HUMALOG [Concomitant]
     Active Substance: INSULIN LISPRO
  13. MYCOSTATIN [Concomitant]
     Active Substance: NYSTATIN

REACTIONS (6)
  - Cerebrovascular accident [Recovered/Resolved]
  - Fall [Unknown]
  - Muscular weakness [Recovered/Resolved]
  - Rash [Recovered/Resolved]
  - Blood potassium increased [Unknown]
  - Confusional state [Not Recovered/Not Resolved]

NARRATIVE: CASE EVENT DATE: 20201117
